FAERS Safety Report 17588399 (Version 2)
Quarter: 2020Q3

REPORT INFORMATION
  Report Type: Spontaneous
  Country: CA (occurrence: CA)
  Receive Date: 20200326
  Receipt Date: 20200811
  Transmission Date: 20201102
  Serious: Yes (Hospitalization, Other)
  Sender: FDA-Public Use
  Company Number: CA-GILEAD-2020-0456430

PATIENT
  Age: 57 Year
  Sex: Female

DRUGS (3)
  1. EMTRIVA [Suspect]
     Active Substance: EMTRICITABINE
     Indication: HIV INFECTION
     Dosage: UNK
     Route: 065
     Dates: start: 201804
  2. VIREAD [Suspect]
     Active Substance: TENOFOVIR DISOPROXIL FUMARATE
     Indication: HIV INFECTION
     Dosage: UNK
     Route: 065
     Dates: start: 201804
  3. RALTEGRAVIR. [Suspect]
     Active Substance: RALTEGRAVIR
     Indication: HIV INFECTION
     Dosage: UNK
     Route: 065
     Dates: start: 201804

REACTIONS (3)
  - Immune reconstitution inflammatory syndrome associated Kaposi^s sarcoma [Recovered/Resolved]
  - Pleural effusion [Recovered/Resolved]
  - Chylothorax [Recovered/Resolved]

NARRATIVE: CASE EVENT DATE: 201806
